FAERS Safety Report 21149217 (Version 1)
Quarter: 2022Q3

REPORT INFORMATION
  Report Type: Spontaneous
  Country: US (occurrence: None)
  Receive Date: 20220729
  Receipt Date: 20220729
  Transmission Date: 20221026
  Serious: Yes (Hospitalization)
  Sender: FDA-Public Use
  Company Number: None

PATIENT
  Age: 41 Year
  Sex: Female
  Weight: 63.9 kg

DRUGS (7)
  1. PAXLOVID [Suspect]
     Active Substance: NIRMATRELVIR\RITONAVIR
     Indication: COVID-19
     Dosage: FREQUENCY : TWICE A DAY;?
     Route: 048
     Dates: start: 20220725, end: 20220727
  2. aspirin 324 mg chewable po x1 [Concomitant]
     Dates: start: 20220727, end: 20220727
  3. aspirin enteric coated 81 mg po daily [Concomitant]
     Dates: start: 202207
  4. atorvastatin 80 mg po daily [Concomitant]
     Dates: start: 202207
  5. clopidogrel 300 mg po x1 [Concomitant]
     Dates: start: 20220727, end: 20220727
  6. CLOPIDOGREL [Concomitant]
     Active Substance: CLOPIDOGREL BISULFATE
     Dates: start: 202207
  7. enoxaparin 40 mg subq x1 [Concomitant]
     Dates: start: 20220727

REACTIONS (6)
  - Transient ischaemic attack [None]
  - Hemianopia homonymous [None]
  - Therapy interrupted [None]
  - Migraine [None]
  - Dyscalculia [None]
  - Dyslexia [None]

NARRATIVE: CASE EVENT DATE: 20220727
